FAERS Safety Report 13355833 (Version 3)
Quarter: 2017Q2

REPORT INFORMATION
  Report Type: Spontaneous
  Country: DE (occurrence: DE)
  Receive Date: 20170321
  Receipt Date: 20170525
  Transmission Date: 20170830
  Serious: Yes (Disabling)
  Sender: FDA-Public Use
  Company Number: DE-GILEAD-2017-0263322

PATIENT
  Age: 84 Year
  Sex: Female
  Weight: 65 kg

DRUGS (8)
  1. ACETYLSALICYLIC ACID [Concomitant]
     Active Substance: ASPIRIN
  2. RANOLAZINE. [Suspect]
     Active Substance: RANOLAZINE
     Dosage: 375 MG, BID
     Route: 048
     Dates: start: 20170207, end: 20170210
  3. AMLODIPINE BESILATE [Concomitant]
     Active Substance: AMLODIPINE BESYLATE
  4. RANOLAZINE. [Suspect]
     Active Substance: RANOLAZINE
     Indication: PRODUCT USED FOR UNKNOWN INDICATION
     Dosage: 375 MG, BID
     Route: 048
     Dates: start: 20170213, end: 20170215
  5. ENALAPRIL MALEATE. [Concomitant]
     Active Substance: ENALAPRIL MALEATE
  6. BEBOXIA 50 H [Concomitant]
  7. ALLOPURINOL. [Concomitant]
     Active Substance: ALLOPURINOL
  8. DUVEL PLUS [Concomitant]

REACTIONS (17)
  - Hyperhidrosis [Recovered/Resolved]
  - Hypoaesthesia oral [Recovered/Resolved]
  - Asthenia [Recovered/Resolved]
  - Constipation [Recovered/Resolved]
  - Visual impairment [Recovered/Resolved]
  - Dehydration [Recovered/Resolved]
  - Cough [Recovered/Resolved]
  - Throat tightness [Recovered/Resolved]
  - Decreased appetite [Recovered/Resolved]
  - Dysphagia [Recovered/Resolved]
  - Urticaria [Recovered/Resolved]
  - Sleep disorder [Recovered/Resolved]
  - Pruritus [Recovered/Resolved]
  - Balance disorder [Recovered/Resolved]
  - Lip dry [Recovered/Resolved]
  - Swollen tongue [Recovered/Resolved]
  - Hypoacusis [Recovered/Resolved]

NARRATIVE: CASE EVENT DATE: 20170215
